FAERS Safety Report 6444768-1 (Version None)
Quarter: 2009Q4

REPORT INFORMATION
  Report Type: 
  Country: None (occurrence: None)
  Receive Date: 20091118
  Receipt Date: 20091113
  Transmission Date: 20100525
  Serious: Yes (Other)
  Sender: FDA-Public Use
  Company Number: B0600327A

PATIENT
  Sex: Female
  Weight: 47 kg

DRUGS (3)
  1. LAPATINIB [Suspect]
     Indication: BREAST CANCER
     Dosage: 1500MG PER DAY
     Route: 048
     Dates: start: 20090826
  2. TRASTUZUMAB [Suspect]
     Indication: BREAST CANCER
     Dosage: 2MGK WEEKLY
     Route: 042
     Dates: start: 20090422
  3. LAMIVUDINE [Concomitant]
     Dates: start: 20081027, end: 20090823

REACTIONS (6)
  - ALANINE AMINOTRANSFERASE ABNORMAL [None]
  - DECREASED APPETITE [None]
  - FATIGUE [None]
  - HEPATITIS B [None]
  - JAUNDICE [None]
  - PAIN [None]
